FAERS Safety Report 5515867-3 (Version None)
Quarter: 2007Q4

REPORT INFORMATION
  Report Type: 
  Country: None (occurrence: None)
  Receive Date: 20071109
  Receipt Date: 20071025
  Transmission Date: 20080405
  Serious: Yes (Hospitalization)
  Sender: FDA-Public Use
  Company Number: 2007002072

PATIENT
  Age: 55 Year
  Sex: Female

DRUGS (5)
  1. ERLOTINIB                                                     (ERLOTIN [Suspect]
     Indication: GASTROINTESTINAL CARCINOMA
     Dosage: (150 MG), ORAL
     Route: 048
     Dates: start: 20070917, end: 20071011
  2. BEVACIZUMAB                                           (INJECTION FOR I [Suspect]
     Indication: GASTROINTESTINAL CARCINOMA
     Dosage: (670 MG, Q2W), INTRAVENOUS
     Route: 042
     Dates: start: 20070917, end: 20070917
  3. TENORMIN [Concomitant]
  4. ACETAMINOPHEN [Concomitant]
  5. WHOLE BLOOD [Concomitant]

REACTIONS (5)
  - CATHETER RELATED COMPLICATION [None]
  - DYSPNOEA [None]
  - HAEMOGLOBIN DECREASED [None]
  - INFECTION [None]
  - THROMBOCYTOPENIA [None]
